FAERS Safety Report 8395290-7 (Version None)
Quarter: 2012Q2

REPORT INFORMATION
  Report Type: 
  Country: None (occurrence: None)
  Receive Date: 20120530
  Receipt Date: 20120524
  Transmission Date: 20120825
  Serious: Yes (Death, Hospitalization)
  Sender: FDA-Public Use
  Company Number: JP-PFIZER INC-2011287185

PATIENT
  Age: 83 Year
  Sex: Male
  Weight: 60 kg

DRUGS (21)
  1. TEMSIROLIMUS [Suspect]
     Dosage: 12.5 MG, UNK
     Route: 042
     Dates: start: 20110506, end: 20110506
  2. POLYCARBOPHIL CALCIUM [Concomitant]
     Dosage: 1 G, 3X/DAY
     Route: 048
     Dates: end: 20110529
  3. TRAMADOL HYDROCHLORIDE [Concomitant]
     Indication: PAIN
     Dosage: 25 MG, 4X/DAY
     Route: 048
     Dates: start: 20110417, end: 20110529
  4. OXINORM [Concomitant]
     Indication: PAIN
     Dosage: 5 MG, AS NEEDED
     Route: 048
     Dates: start: 20110428, end: 20110529
  5. CHLOR-TRIMETON [Concomitant]
     Indication: PROPHYLAXIS
     Dosage: 10 MG, 1X/DAY
     Route: 042
     Dates: start: 20110408, end: 20110408
  6. MAGNESIUM OXIDE [Concomitant]
     Dosage: 0.5 G, 3X/DAY
     Route: 048
     Dates: end: 20110529
  7. ALOSENN [Concomitant]
     Dosage: 0.5 G, 3X/DAY
     Route: 048
     Dates: end: 20110529
  8. TEMSIROLIMUS [Suspect]
     Indication: RENAL CELL CARCINOMA
     Dosage: 12.5 MG, UNK
     Route: 042
     Dates: start: 20110408, end: 20110408
  9. TEMSIROLIMUS [Suspect]
     Dosage: 12.5 MG, UNK
     Route: 042
     Dates: start: 20110422, end: 20110422
  10. LOXONIN [Concomitant]
     Dosage: UNK
     Route: 062
     Dates: end: 20110529
  11. OXYCONTIN [Concomitant]
     Indication: PAIN
     Dosage: 10 MG, 2X/DAY
     Route: 048
     Dates: start: 20110512, end: 20110529
  12. NORVASC [Concomitant]
     Dosage: 10 MG, 1X/DAY
     Route: 048
     Dates: end: 20110529
  13. ACETAMINOPHEN [Concomitant]
     Indication: PAIN
     Dosage: 400 MG, 3X/DAY
     Route: 048
     Dates: start: 20110422, end: 20110529
  14. MUCOSTA [Concomitant]
     Dosage: 100 MG, 3X/DAY
     Route: 048
     Dates: start: 20110427, end: 20110529
  15. CHLOR-TRIMETON [Concomitant]
     Dosage: 10 MG, 1X/DAY
     Route: 042
     Dates: start: 20110506, end: 20110506
  16. GASCON [Concomitant]
     Dosage: 80 MG, 3X/DAY
     Route: 048
     Dates: end: 20110529
  17. PURSENNID [Concomitant]
     Dosage: 24 MG, 1X/DAY
     Dates: end: 20110529
  18. NEUROTROPIN [Concomitant]
     Dosage: 8 UNITS TWICE DAILY
     Route: 048
     Dates: end: 20110529
  19. RABEPRAZOLE SODIUM [Concomitant]
     Dosage: 10 MG, 1X/DAY
     Route: 048
     Dates: end: 20110529
  20. PROCHLORPERAZINE [Concomitant]
     Dosage: 5 MG, 3X/DAY
     Route: 048
     Dates: start: 20110428, end: 20110529
  21. CHLOR-TRIMETON [Concomitant]
     Dosage: 10 MG, 1X/DAY
     Route: 042
     Dates: start: 20110422, end: 20110422

REACTIONS (1)
  - DYSPNOEA [None]
